FAERS Safety Report 14051687 (Version 1)
Quarter: 2017Q4

REPORT INFORMATION
  Report Type: Spontaneous
  Country: PT (occurrence: PT)
  Receive Date: 20171006
  Receipt Date: 20171006
  Transmission Date: 20180321
  Serious: Yes (Hospitalization)
  Sender: FDA-Public Use
  Company Number: PT-ACCORD-059520

PATIENT
  Age: 68 Year
  Sex: Male

DRUGS (10)
  1. METFORMIN [Suspect]
     Active Substance: METFORMIN HYDROCHLORIDE
     Indication: PRODUCT USED FOR UNKNOWN INDICATION
  2. DIAZEPAM. [Suspect]
     Active Substance: DIAZEPAM
     Indication: PRODUCT USED FOR UNKNOWN INDICATION
  3. ACETYLSALICYLIC ACID [Suspect]
     Active Substance: ASPIRIN
     Indication: PRODUCT USED FOR UNKNOWN INDICATION
  4. ENALAPRIL [Suspect]
     Active Substance: ENALAPRIL
     Indication: PRODUCT USED FOR UNKNOWN INDICATION
  5. AMLODIPINE [Suspect]
     Active Substance: AMLODIPINE BESYLATE
     Indication: PRODUCT USED FOR UNKNOWN INDICATION
  6. GLICLAZIDE [Suspect]
     Active Substance: GLICLAZIDE
     Indication: PRODUCT USED FOR UNKNOWN INDICATION
  7. CYNARA CARDUNCULUS/CYNARA CARDUNCULUS DRY EXTRACT/CYNARA CARDUNCULUS LEAF DRY EX [Suspect]
     Active Substance: HERBALS
     Indication: GOUT
  8. COLCHICINE. [Suspect]
     Active Substance: COLCHICINE
     Indication: GOUT
  9. CLONIXIN [Suspect]
     Active Substance: CLONIXIN
     Indication: GOUT
  10. HYDROCHLOROTHIAZIDE. [Suspect]
     Active Substance: HYDROCHLOROTHIAZIDE
     Indication: PRODUCT USED FOR UNKNOWN INDICATION

REACTIONS (15)
  - Peripheral motor neuropathy [Recovered/Resolved]
  - Blood alkaline phosphatase increased [Recovered/Resolved]
  - Cholestasis [Recovered/Resolved]
  - Hepatotoxicity [None]
  - Drug level increased [None]
  - Gastritis [Recovered/Resolved]
  - Jaundice [Recovered/Resolved]
  - Anaemia [Not Recovered/Not Resolved]
  - Lymphadenopathy [Recovered/Resolved]
  - Blood glucose abnormal [None]
  - Oesophagitis [Recovered/Resolved]
  - Gout [Recovered/Resolved]
  - Thrombocytosis [Recovered/Resolved]
  - Hiatus hernia [Recovered/Resolved]
  - Drug interaction [None]
